FAERS Safety Report 6278019-8 (Version None)
Quarter: 2009Q3

REPORT INFORMATION
  Report Type: 
  Country: None (occurrence: None)
  Receive Date: 20090722
  Receipt Date: 20090709
  Transmission Date: 20100115
  Serious: Yes (Hospitalization, Other)
  Sender: FDA-Public Use
  Company Number: PHHY2009IE04219

PATIENT
  Sex: Male

DRUGS (5)
  1. CLOZARIL [Suspect]
     Indication: SCHIZOPHRENIA
     Dosage: 800 MG
     Dates: start: 20010731
  2. CLOZARIL [Suspect]
     Dosage: 300 MG
     Dates: end: 20090429
  3. ABILIFY [Concomitant]
     Dosage: 100 MG MANE, 20 MG NOCTE
  4. EPILIM CHRONO [Concomitant]
     Dosage: 500 MG NOCTE
     Route: 048
  5. EPILIM [Concomitant]

REACTIONS (12)
  - DRUG INTOLERANCE [None]
  - ERYTHROPOIESIS ABNORMAL [None]
  - FATIGUE [None]
  - HAEMATOCRIT DECREASED [None]
  - HAEMOGLOBIN DECREASED [None]
  - LOWER RESPIRATORY TRACT INFECTION [None]
  - MEGAKARYOCYTES INCREASED [None]
  - NEUTROPHIL COUNT INCREASED [None]
  - RED BLOOD CELL COUNT ABNORMAL [None]
  - THROMBOCYTOPENIA [None]
  - WEIGHT DECREASED [None]
  - WHITE BLOOD CELL COUNT INCREASED [None]
